FAERS Safety Report 5177501-4 (Version None)
Quarter: 2006Q4

REPORT INFORMATION
  Report Type: 
  Country: None (occurrence: None)
  Receive Date: 20061218
  Receipt Date: 20061204
  Transmission Date: 20070319
  Serious: Yes (Hospitalization)
  Sender: FDA-Public Use
  Company Number: FR-ELI_LILLY_AND_COMPANY-FR200612000700

PATIENT
  Age: 71 Year
  Sex: Female

DRUGS (1)
  1. FORTEO [Suspect]
     Indication: OSTEOPOROSIS
     Dosage: 20 UG, DAILY (1/D)
     Route: 058
     Dates: start: 20050927, end: 20061112

REACTIONS (7)
  - ABDOMINAL PAIN UPPER [None]
  - FORMICATION [None]
  - HYPERCHOLESTEROLAEMIA [None]
  - JOINT SPRAIN [None]
  - OEDEMA PERIPHERAL [None]
  - PHLEBITIS [None]
  - SENSATION OF HEAVINESS [None]
